FAERS Safety Report 8955908 (Version 1)
Quarter: 2012Q4

REPORT INFORMATION
  Report Type: 
  Country: US (occurrence: US)
  Receive Date: 20121210
  Receipt Date: 20121210
  Transmission Date: 20130627
  Serious: Yes (Death, Hospitalization)
  Sender: FDA-Public Use
  Company Number: US-BAXTER-2012BAX026523

PATIENT
  Age: 64 Year
  Sex: Male

DRUGS (7)
  1. VANCOMYCIN INJECTION, USP [Suspect]
     Indication: INFECTION
  2. CEFEPIME [Suspect]
     Indication: INFECTION
  3. MICAFUNGIN [Suspect]
     Indication: INFECTION
  4. MEROPENEM [Suspect]
     Indication: INFECTION
  5. AZITHROMYCIN [Suspect]
     Indication: INFECTION
  6. LISINOPRIL [Concomitant]
     Indication: HYPERTENSION
     Route: 065
  7. ATENOLOL [Concomitant]
     Indication: HYPERTENSION
     Route: 065

REACTIONS (7)
  - Pancytopenia [Unknown]
  - Acute respiratory failure [Unknown]
  - Atrial fibrillation [Unknown]
  - Neutropenic sepsis [Unknown]
  - Pneumonia [Unknown]
  - Bacteraemia [Unknown]
  - Death [Fatal]
